FAERS Safety Report 9448285 (Version 1)
Quarter: 2013Q3

REPORT INFORMATION
  Report Type: Spontaneous
  Country: GB (occurrence: CH)
  Receive Date: 20130808
  Receipt Date: 20130808
  Transmission Date: 20140515
  Serious: Yes (Other)
  Sender: FDA-Public Use
  Company Number: GB-PFIZER INC-2013227619

PATIENT
  Age: 88 Year
  Sex: Male
  Weight: 107 kg

DRUGS (16)
  1. SERTRALINE HCL [Suspect]
     Indication: DYSTHYMIC DISORDER
     Dosage: 100 MG, 1X/DAY
     Route: 048
     Dates: start: 2009
  2. SINTROM [Suspect]
     Indication: PULMONARY EMBOLISM
     Dosage: UNK
     Route: 048
     Dates: start: 20130109
  3. ACETYLSALICYLIC ACID [Suspect]
     Indication: MYOCARDIAL INFARCTION
     Dosage: 100 MG, 1X/DAY
     Route: 048
     Dates: start: 20130106
  4. NEXIUM [Suspect]
     Dosage: 20 MG, 1X/DAY
     Route: 048
     Dates: end: 20130313
  5. NEXIUM [Suspect]
     Dosage: 40 MG, 1X/DAY
     Route: 048
     Dates: start: 20130314
  6. ATACAND [Concomitant]
     Indication: ESSENTIAL HYPERTENSION
     Dosage: UNK
  7. FLUANXOL - SLOW RELEASE [Concomitant]
     Indication: DYSTHYMIC DISORDER
     Dosage: UNK
  8. EUTHYROX [Concomitant]
     Indication: HYPOTHYROIDISM
     Dosage: UNK
  9. GLUCOPHAGE [Concomitant]
     Indication: TYPE 2 DIABETES MELLITUS
     Dosage: UNK
     Dates: start: 20120207
  10. DANCOR [Concomitant]
     Indication: MYOCARDIAL INFARCTION
     Dosage: UNK
  11. DAFALGAN [Concomitant]
     Indication: PAIN
     Dosage: UNK
  12. LAXOBERON [Concomitant]
     Indication: CONSTIPATION
     Dosage: UNK
     Dates: start: 20130124
  13. TORASEMIDE [Concomitant]
     Indication: ESSENTIAL HYPERTENSION
     Dosage: UNK
  14. REDOXON [Concomitant]
     Indication: VITAMIN C DEFICIENCY
     Dosage: UNK
     Dates: start: 20130318
  15. IMOVANE [Concomitant]
     Indication: INSOMNIA
     Dosage: UNK
     Dates: start: 20130210
  16. VITAMIN B1 [Concomitant]
     Indication: VITAMIN B1 DEFICIENCY
     Dosage: UNK
     Dates: start: 20130111

REACTIONS (6)
  - Cardiac failure [Unknown]
  - Pulmonary embolism [Unknown]
  - Atrial fibrillation [Unknown]
  - Purpura [Recovering/Resolving]
  - Tongue haematoma [Recovered/Resolved]
  - Off label use [Unknown]
